FAERS Safety Report 25142294 (Version 1)
Quarter: 2025Q1

REPORT INFORMATION
  Report Type: Spontaneous
  Country: ES (occurrence: ES)
  Receive Date: 20250331
  Receipt Date: 20250331
  Transmission Date: 20250408
  Serious: Yes (Hospitalization)
  Sender: MYLAN
  Company Number: None

PATIENT
  Age: 88 Year
  Sex: Female

DRUGS (24)
  1. VALSARTAN [Suspect]
     Active Substance: VALSARTAN
     Indication: Hypertension
     Dosage: 160 MILLIGRAM, BID, 56 TABLETS
     Dates: start: 20241116
  2. VALSARTAN [Suspect]
     Active Substance: VALSARTAN
     Dosage: 160 MILLIGRAM, BID, 56 TABLETS
     Route: 048
     Dates: start: 20241116
  3. VALSARTAN [Suspect]
     Active Substance: VALSARTAN
     Dosage: 160 MILLIGRAM, BID, 56 TABLETS
     Route: 048
     Dates: start: 20241116
  4. VALSARTAN [Suspect]
     Active Substance: VALSARTAN
     Dosage: 160 MILLIGRAM, BID, 56 TABLETS
     Dates: start: 20241116
  5. OMEPRAZOLE [Suspect]
     Active Substance: OMEPRAZOLE
     Indication: Prophylaxis
     Dosage: 20 MILLIGRAM, QD, 28 CAPSULES
     Dates: start: 20050621, end: 20250307
  6. OMEPRAZOLE [Suspect]
     Active Substance: OMEPRAZOLE
     Dosage: 20 MILLIGRAM, QD, 28 CAPSULES
     Route: 048
     Dates: start: 20050621, end: 20250307
  7. OMEPRAZOLE [Suspect]
     Active Substance: OMEPRAZOLE
     Dosage: 20 MILLIGRAM, QD, 28 CAPSULES
     Route: 048
     Dates: start: 20050621, end: 20250307
  8. OMEPRAZOLE [Suspect]
     Active Substance: OMEPRAZOLE
     Dosage: 20 MILLIGRAM, QD, 28 CAPSULES
     Dates: start: 20050621, end: 20250307
  9. TORSEMIDE [Suspect]
     Active Substance: TORSEMIDE
     Indication: Hypertension
     Dosage: 2.5 MILLIGRAM, QD, 30 TABLETS
     Dates: start: 20241127
  10. TORSEMIDE [Suspect]
     Active Substance: TORSEMIDE
     Dosage: 2.5 MILLIGRAM, QD, 30 TABLETS
     Route: 048
     Dates: start: 20241127
  11. TORSEMIDE [Suspect]
     Active Substance: TORSEMIDE
     Dosage: 2.5 MILLIGRAM, QD, 30 TABLETS
     Route: 048
     Dates: start: 20241127
  12. TORSEMIDE [Suspect]
     Active Substance: TORSEMIDE
     Dosage: 2.5 MILLIGRAM, QD, 30 TABLETS
     Dates: start: 20241127
  13. TRAZODONE HYDROCHLORIDE [Suspect]
     Active Substance: TRAZODONE HYDROCHLORIDE
     Indication: Anxiety
     Dosage: 100 MILLIGRAM, QD, 30 TABLETS
     Dates: start: 20230602
  14. TRAZODONE HYDROCHLORIDE [Suspect]
     Active Substance: TRAZODONE HYDROCHLORIDE
     Dosage: 100 MILLIGRAM, QD, 30 TABLETS
     Route: 048
     Dates: start: 20230602
  15. TRAZODONE HYDROCHLORIDE [Suspect]
     Active Substance: TRAZODONE HYDROCHLORIDE
     Dosage: 100 MILLIGRAM, QD, 30 TABLETS
     Route: 048
     Dates: start: 20230602
  16. TRAZODONE HYDROCHLORIDE [Suspect]
     Active Substance: TRAZODONE HYDROCHLORIDE
     Dosage: 100 MILLIGRAM, QD, 30 TABLETS
     Dates: start: 20230602
  17. LORAZEPAM [Suspect]
     Active Substance: LORAZEPAM
     Indication: Anxiety
     Dosage: 1 MILLIGRAM, QD2, 25 TABLETS
     Dates: start: 20230317
  18. LORAZEPAM [Suspect]
     Active Substance: LORAZEPAM
     Dosage: 1 MILLIGRAM, QD2, 25 TABLETS
     Route: 048
     Dates: start: 20230317
  19. LORAZEPAM [Suspect]
     Active Substance: LORAZEPAM
     Dosage: 1 MILLIGRAM, QD2, 25 TABLETS
     Route: 048
     Dates: start: 20230317
  20. LORAZEPAM [Suspect]
     Active Substance: LORAZEPAM
     Dosage: 1 MILLIGRAM, QD2, 25 TABLETS
     Dates: start: 20230317
  21. PALEXIA [Suspect]
     Active Substance: TAPENTADOL HYDROCHLORIDE
     Indication: Rheumatoid arthritis
     Dosage: 50 MILLIGRAM, BID, 30 TABLETS
     Dates: start: 20191004, end: 20250307
  22. PALEXIA [Suspect]
     Active Substance: TAPENTADOL HYDROCHLORIDE
     Dosage: 50 MILLIGRAM, BID, 30 TABLETS
     Route: 048
     Dates: start: 20191004, end: 20250307
  23. PALEXIA [Suspect]
     Active Substance: TAPENTADOL HYDROCHLORIDE
     Dosage: 50 MILLIGRAM, BID, 30 TABLETS
     Route: 048
     Dates: start: 20191004, end: 20250307
  24. PALEXIA [Suspect]
     Active Substance: TAPENTADOL HYDROCHLORIDE
     Dosage: 50 MILLIGRAM, BID, 30 TABLETS
     Dates: start: 20191004, end: 20250307

REACTIONS (1)
  - Hyponatraemia [Recovering/Resolving]

NARRATIVE: CASE EVENT DATE: 20250306
